FAERS Safety Report 13846582 (Version 1)
Quarter: 2017Q3

REPORT INFORMATION
  Report Type: Spontaneous
  Country: GB (occurrence: GB)
  Receive Date: 20170808
  Receipt Date: 20170808
  Transmission Date: 20171127
  Serious: Yes (Other)
  Sender: FDA-Public Use
  Company Number: GB-MYLANLABS-2017M1047400

PATIENT

DRUGS (3)
  1. CARBAMAZEPINE. [Suspect]
     Active Substance: CARBAMAZEPINE
     Indication: PRODUCT USED FOR UNKNOWN INDICATION
     Dates: start: 20170714
  2. BIMATOPROST. [Concomitant]
     Active Substance: BIMATOPROST
     Dates: start: 20170215
  3. INHALERIN [Concomitant]
     Dosage: 1 PUFF UP TO FOUR TIMES DAILY
     Route: 055
     Dates: start: 20170609, end: 20170709

REACTIONS (1)
  - Nodal arrhythmia [Unknown]

NARRATIVE: CASE EVENT DATE: 20170718
